FAERS Safety Report 9662370 (Version 1)
Quarter: 2013Q4

REPORT INFORMATION
  Report Type: Spontaneous
  Country: US (occurrence: US)
  Receive Date: 20131031
  Receipt Date: 20131031
  Transmission Date: 20140711
  Serious: No
  Sender: FDA-Public Use
  Company Number: US-PURDUE-USA-2011-0071103

PATIENT
  Sex: 0

DRUGS (4)
  1. OXYCONTIN (NDA 22-272) [Suspect]
     Indication: CHRONIC FATIGUE SYNDROME
     Dosage: UNK UNK, UNK
  2. OXYCONTIN (NDA 22-272) [Suspect]
     Indication: ARTHRALGIA
  3. OXYCONTIN (NDA 22-272) [Suspect]
     Indication: FIBROMYALGIA
  4. OXYCONTIN (NDA 22-272) [Suspect]
     Indication: NECK PAIN

REACTIONS (1)
  - Drug ineffective [Unknown]
